FAERS Safety Report 5820423-3 (Version None)
Quarter: 2008Q3

REPORT INFORMATION
  Report Type: 
  Country: None (occurrence: None)
  Receive Date: 20080724
  Receipt Date: 20070718
  Transmission Date: 20090109
  Serious: No
  Sender: FDA-Public Use
  Company Number: A0664866A

PATIENT
  Sex: Female

DRUGS (7)
  1. AVANDIA [Suspect]
     Dosage: 8MG PER DAY
     Route: 048
     Dates: end: 20070507
  2. FOSAMAX [Concomitant]
  3. GLYBURIDE AND METFORMIN HCL [Concomitant]
  4. ACTOS [Concomitant]
  5. LIPITOR [Concomitant]
  6. NIFEDIPINE [Concomitant]
  7. LISINOPRIL [Concomitant]

REACTIONS (2)
  - BURNING SENSATION [None]
  - CHEST DISCOMFORT [None]
